FAERS Safety Report 23742142 (Version 1)
Quarter: 2024Q2

REPORT INFORMATION
  Report Type: Spontaneous
  Country: US (occurrence: US)
  Receive Date: 20240415
  Receipt Date: 20240415
  Transmission Date: 20240716
  Serious: No
  Sender: FDA-Public Use
  Company Number: US-E2BLSMVVAL-SPO/USA/24/0005399

PATIENT

DRUGS (1)
  1. SUMATRIPTAN SUCCINATE [Suspect]
     Active Substance: SUMATRIPTAN SUCCINATE
     Indication: Migraine
     Route: 065

REACTIONS (6)
  - Nausea [Unknown]
  - Migraine [Unknown]
  - Drug ineffective [Unknown]
  - Extra dose administered [Unknown]
  - Therapeutic response changed [Unknown]
  - Product substitution issue [Unknown]
